FAERS Safety Report 11034718 (Version 2)
Quarter: 2015Q2

REPORT INFORMATION
  Report Type: Spontaneous
  Country: US (occurrence: US)
  Receive Date: 20150415
  Receipt Date: 20150525
  Transmission Date: 20150821
  Serious: Yes (Other)
  Sender: FDA-Public Use
  Company Number: US-JNJFOC-20140113232

PATIENT
  Age: 76 Year
  Sex: Male
  Weight: 85.73 kg

DRUGS (18)
  1. BETAMETHASONE SODIUM PHOSPHATE [Concomitant]
     Active Substance: BETAMETHASONE SODIUM PHOSPHATE
     Indication: SPINAL PAIN
     Dosage: EVERY EIGHT TO TEN WEEKS
     Route: 050
     Dates: start: 2013
  2. CALCIUM CARBONATE AND VITAMIN D [Concomitant]
     Indication: OSTEOPOROSIS
     Dosage: 600MG AND 400MG
     Route: 065
  3. HYDROCODONE BITARTRATE AND ACETAMINOPHEN [Concomitant]
     Active Substance: ACETAMINOPHEN\HYDROCODONE BITARTRATE
     Indication: PAIN
     Dosage: 5-325 MG, 1 OR 2 TABLETS Q6H PRN??1 REFILL
     Route: 048
     Dates: start: 20130131
  4. TAMSULOSIN HCL [Concomitant]
     Active Substance: TAMSULOSIN
     Dosage: 1 TABLET IN THE A.M AND 1 TABLET IN THE P.M??3 REFILLS
     Route: 048
     Dates: start: 20130826
  5. XARELTO [Suspect]
     Active Substance: RIVAROXABAN
     Indication: THROMBOSIS PROPHYLAXIS
     Dosage: ONCE WITH EVERY MEAL
     Route: 048
     Dates: start: 20131203
  6. XARELTO [Suspect]
     Active Substance: RIVAROXABAN
     Indication: CEREBROVASCULAR ACCIDENT PROPHYLAXIS
     Dosage: ONCE WITH EVERY MEAL
     Route: 048
     Dates: start: 20131203
  7. DOXAZOSIN [Concomitant]
     Active Substance: DOXAZOSIN\DOXAZOSIN MESYLATE
     Indication: BLOOD PRESSURE
     Dosage: 3 REFILLS
     Route: 048
     Dates: start: 20130114
  8. WARFARIN SODIUM. [Suspect]
     Active Substance: WARFARIN SODIUM
     Indication: PRODUCT USED FOR UNKNOWN INDICATION
     Dosage: ON SUNDAY, MONDAY, WEDNESDAY, THURSDAY AND FRIDAY; 3 REFILLS
     Route: 048
     Dates: start: 20130826
  9. DOXAZOSIN [Concomitant]
     Active Substance: DOXAZOSIN\DOXAZOSIN MESYLATE
     Indication: URINARY TRACT DISORDER
     Dosage: 3 REFILLS
     Route: 048
     Dates: start: 20130114
  10. CIPROFLOXACIN. [Concomitant]
     Active Substance: CIPROFLOXACIN
     Dosage: 0 REFILLS
     Route: 048
     Dates: start: 20130918
  11. PANTOPRAZOLE SODIUM [Concomitant]
     Dosage: 3 REFILLS
     Route: 048
     Dates: start: 20130826
  12. CRESTOR [Concomitant]
     Active Substance: ROSUVASTATIN CALCIUM
     Dosage: 3 REFILLS
     Route: 048
     Dates: start: 20130114
  13. WARFARIN SODIUM. [Suspect]
     Active Substance: WARFARIN SODIUM
     Indication: PRODUCT USED FOR UNKNOWN INDICATION
     Dosage: ON SATURDAY AND TEUSDAY; 3 REFILLS
     Route: 048
     Dates: start: 20130826
  14. FOLIC ACID. [Concomitant]
     Active Substance: FOLIC ACID
     Dosage: 3 REFILLS
     Route: 048
     Dates: start: 20130826
  15. FUROSEMIDE. [Concomitant]
     Active Substance: FUROSEMIDE
     Dosage: 3 REFILLS
     Route: 048
     Dates: start: 20130114
  16. LISINOPRIL. [Concomitant]
     Active Substance: LISINOPRIL
     Dosage: 3 REFILLS
     Route: 048
     Dates: start: 20130826
  17. XARELTO [Suspect]
     Active Substance: RIVAROXABAN
     Indication: ATRIAL FIBRILLATION
     Dosage: ONCE WITH EVERY MEAL
     Route: 048
     Dates: start: 20131203
  18. ACETAMINOPHEN. [Concomitant]
     Active Substance: ACETAMINOPHEN
     Indication: SPINAL PAIN
     Dosage: EVERY EIGHT TO TEN WEEKS
     Route: 050
     Dates: start: 2013

REACTIONS (1)
  - Rectal haemorrhage [Recovered/Resolved]

NARRATIVE: CASE EVENT DATE: 20140108
